FAERS Safety Report 10490564 (Version 4)
Quarter: 2014Q4

REPORT INFORMATION
  Report Type: Report from Study
  Country: BR (occurrence: BR)
  Receive Date: 20141002
  Receipt Date: 20141027
  Transmission Date: 20150528
  Serious: Yes (Life-Threatening, Hospitalization, Other)
  Sender: FDA-Public Use
  Company Number: PHHY2014BR118230

PATIENT
  Age: 70 Year
  Sex: Male
  Weight: 63 kg

DRUGS (12)
  1. PROLOPA [Concomitant]
     Active Substance: BENSERAZIDE\LEVODOPA
     Indication: PARKINSON^S DISEASE
     Dosage: 8 DF, DAILY
     Route: 065
  2. EXELON PATCH [Suspect]
     Active Substance: RIVASTIGMINE
     Indication: PARKINSON^S DISEASE
     Dosage: 4.6 MG, QD (9MG/5CM2)
     Route: 062
     Dates: start: 201403, end: 201404
  3. SEROQUEL [Concomitant]
     Active Substance: QUETIAPINE FUMARATE
     Indication: DEPRESSION
     Dosage: 1 DF, DAILY
     Route: 065
     Dates: start: 201404
  4. SEROQUEL [Concomitant]
     Active Substance: QUETIAPINE FUMARATE
     Dosage: 2 DF, UNK
  5. RIVOTRIL [Concomitant]
     Active Substance: CLONAZEPAM
     Indication: NERVOUSNESS
     Dosage: 1 DF, QHS
     Route: 065
  6. PROLOPA [Concomitant]
     Active Substance: BENSERAZIDE\LEVODOPA
     Dosage: 1.5 DF, QID
     Route: 065
  7. EXELON PATCH [Suspect]
     Active Substance: RIVASTIGMINE
     Dosage: 9.5 MG, QD (18MG/10CM2)
     Route: 062
     Dates: start: 201404, end: 201405
  8. EXELON PATCH [Suspect]
     Active Substance: RIVASTIGMINE
     Dosage: 13.3 MG, QD (27MG/15CM2)
     Route: 062
     Dates: start: 201405, end: 20141001
  9. SIFROL [Concomitant]
     Active Substance: PRAMIPEXOLE
     Dosage: 1 MG, UNK
     Route: 065
  10. SIFROL [Concomitant]
     Active Substance: PRAMIPEXOLE
     Dosage: 1 DF (0.375MG)
     Route: 065
  11. SIFROL [Concomitant]
     Active Substance: PRAMIPEXOLE
     Indication: PARKINSON^S DISEASE
     Dosage: 75
     Route: 065
  12. ZILEDON [Concomitant]
     Active Substance: DONEPEZIL HYDROCHLORIDE
     Indication: POOR QUALITY SLEEP
     Dosage: 1 DF, QHS
     Route: 065

REACTIONS (18)
  - Blood pressure decreased [Not Recovered/Not Resolved]
  - Nervousness [Unknown]
  - Dysstasia [Unknown]
  - Application site hypersensitivity [Not Recovered/Not Resolved]
  - Application site erythema [Not Recovered/Not Resolved]
  - Malabsorption [Unknown]
  - Respiratory arrest [Recovering/Resolving]
  - Orthostatic hypotension [Unknown]
  - White blood cell count increased [Not Recovered/Not Resolved]
  - Blood pressure fluctuation [Unknown]
  - Dizziness [Not Recovered/Not Resolved]
  - Weight decreased [Recovering/Resolving]
  - Skin sensitisation [Not Recovered/Not Resolved]
  - General physical health deterioration [Recovering/Resolving]
  - Drug ineffective [Unknown]
  - Pneumonia [Recovering/Resolving]
  - Dry skin [Not Recovered/Not Resolved]
  - Fall [Not Recovered/Not Resolved]

NARRATIVE: CASE EVENT DATE: 20141015
